FAERS Safety Report 14904730 (Version 1)
Quarter: 2018Q2

REPORT INFORMATION
  Report Type: Spontaneous
  Country: US (occurrence: US)
  Receive Date: 20180517
  Receipt Date: 20180517
  Transmission Date: 20180711
  Serious: No
  Sender: FDA-Public Use
  Company Number: US-SA-2017SA148640

PATIENT
  Age: 70 Year
  Sex: Female

DRUGS (2)
  1. LANTUS SOLOSTAR [Suspect]
     Active Substance: INSULIN GLARGINE
     Indication: TYPE 2 DIABETES MELLITUS
     Dosage: DOSE:20 UNIT(S)
     Route: 051
     Dates: start: 201702
  2. SOLOSTAR [Suspect]
     Active Substance: DEVICE
     Indication: TYPE 2 DIABETES MELLITUS
     Dates: start: 201702

REACTIONS (16)
  - Muscle spasms [Unknown]
  - Blood pressure increased [Unknown]
  - Musculoskeletal pain [Unknown]
  - Blood glucose increased [Unknown]
  - Movement disorder [Unknown]
  - Feeling abnormal [Unknown]
  - Asthenia [Unknown]
  - Muscular weakness [Unknown]
  - Hypoaesthesia [Unknown]
  - Blood glucose decreased [Unknown]
  - Dyspnoea [Unknown]
  - Hyperhidrosis [Unknown]
  - Joint injury [Unknown]
  - Heart rate increased [Unknown]
  - Urinary tract infection [Unknown]
  - Sleep disorder [Unknown]
